FAERS Safety Report 4709978-X (Version None)
Quarter: 2005Q3

REPORT INFORMATION
  Report Type: 
  Country: None (occurrence: None)
  Receive Date: 20050706
  Receipt Date: 20050621
  Transmission Date: 20060218
  Serious: Yes (Other)
  Sender: FDA-Public Use
  Company Number: 215529

PATIENT
  Age: 63 Year
  Sex: Female
  Weight: 65 kg

DRUGS (7)
  1. RITUXAN [Suspect]
     Indication: NON-HODGKIN'S LYMPHOMA
     Dosage: 600 MG IV DRIP
     Route: 041
     Dates: start: 20011218, end: 20020207
  2. DECADRON [Suspect]
     Indication: NON-HODGKIN'S LYMPHOMA
     Dosage: 20 MG, X3, IV DRIP
     Route: 041
     Dates: start: 20020107, end: 20020210
  3. VEPESID [Suspect]
     Indication: NON-HODGKIN'S LYMPHOMA
     Dosage: 120 G, X3
     Dates: start: 20020107, end: 20020210
  4. CYCLOPHOSPHAMIDE [Suspect]
     Indication: NON-HODGKIN'S LYMPHOMA
     Dosage: 1500 MG, X 3
     Dates: start: 20020107, end: 20020208
  5. CYTARABINE [Suspect]
     Indication: NON-HODGKIN'S LYMPHOMA
     Dosage: 2.5 G, X 3
     Dates: start: 20020107, end: 20020210
  6. LOXONIN (LOXOPROFEN SODIUM) [Concomitant]
  7. POLARAMINE (DECHLORPHENIRAMINE MALEATE) [Concomitant]

REACTIONS (1)
  - WHITE BLOOD CELL COUNT DECREASED [None]
